FAERS Safety Report 7114298-2 (Version None)
Quarter: 2010Q4

REPORT INFORMATION
  Report Type: 
  Country: None (occurrence: None)
  Receive Date: 20101119
  Receipt Date: 20101105
  Transmission Date: 20110411
  Serious: Yes (Other)
  Sender: FDA-Public Use
  Company Number: US-PFIZER INC-US-WYE-H17792610

PATIENT
  Age: 26 Year
  Sex: Female

DRUGS (1)
  1. ROBITUSSIN COUGH AND CHEST CONGESTION DM [Suspect]
     Indication: COUGH
     Dosage: 2 TEASPOONFULS 1 TIME
     Route: 048
     Dates: start: 20100925, end: 20100925

REACTIONS (3)
  - CHOKING [None]
  - DYSPHAGIA [None]
  - PRODUCT CONTAMINATION PHYSICAL [None]
